FAERS Safety Report 10628731 (Version 2)
Quarter: 2014Q4

REPORT INFORMATION
  Report Type: Spontaneous
  Country: US (occurrence: US)
  Receive Date: 20141205
  Receipt Date: 20141205
  Transmission Date: 20150529
  Serious: Yes (Life-Threatening, Hospitalization, Other)
  Sender: FDA-Public Use
  Company Number: US-BRISTOL-MYERS SQUIBB COMPANY-20771028

PATIENT
  Age: 28 Year
  Sex: Male
  Weight: 96.14 kg

DRUGS (6)
  1. ABILIFY MAINTENA [Suspect]
     Active Substance: ARIPIPRAZOLE
     Indication: PSYCHOTIC DISORDER
     Dosage: 300 MG:JAN14/FEB14
     Route: 030
     Dates: start: 201403
  2. RISPERIDONE. [Concomitant]
     Active Substance: RISPERIDONE
  3. INSULIN [Concomitant]
     Active Substance: INSULIN NOS
  4. ABILIFY [Suspect]
     Active Substance: ARIPIPRAZOLE
     Route: 048
  5. ABILIFY MAINTENA [Suspect]
     Active Substance: ARIPIPRAZOLE
     Indication: SCHIZOPHRENIA
     Dosage: 300 MG:JAN14/FEB14
     Route: 030
     Dates: start: 201403
  6. ISONIAZIDE [Concomitant]
     Active Substance: ISONIAZID
     Indication: TUBERCULOSIS

REACTIONS (7)
  - Hallucination, visual [Unknown]
  - Blood glucose increased [Unknown]
  - Social avoidant behaviour [Unknown]
  - Weight increased [Unknown]
  - Diabetes mellitus [Unknown]
  - Depressive symptom [Unknown]
  - Ketoacidosis [Not Recovered/Not Resolved]

NARRATIVE: CASE EVENT DATE: 2014
